FAERS Safety Report 7680939-4 (Version None)
Quarter: 2011Q3

REPORT INFORMATION
  Report Type: 
  Country: None (occurrence: None)
  Receive Date: 20110812
  Receipt Date: 20110803
  Transmission Date: 20111222
  Serious: Yes (Other)
  Sender: FDA-Public Use
  Company Number: US-JNJFOC-20110802835

PATIENT
  Sex: Female
  Weight: 92.99 kg

DRUGS (8)
  1. REMICADE [Suspect]
     Indication: PSORIATIC ARTHROPATHY
     Route: 042
     Dates: start: 20060101
  2. INSULIN [Concomitant]
     Indication: DIABETES MELLITUS
     Route: 048
     Dates: start: 20090101
  3. LORATADINE [Concomitant]
     Indication: MULTIPLE ALLERGIES
     Route: 048
  4. WELCHOL [Concomitant]
     Indication: BLOOD CHOLESTEROL
     Dosage: 2500MG DOSE
     Route: 048
  5. ALLERGY MEDICATION [Concomitant]
     Indication: MULTIPLE ALLERGIES
     Route: 045
  6. OXYCODONE HCL [Concomitant]
     Indication: BREAKTHROUGH PAIN
     Route: 048
  7. CELEBREX [Concomitant]
     Indication: OSTEOARTHRITIS
     Route: 048
  8. ZOLPIDEM TARTRATE [Concomitant]
     Indication: SLEEP DISORDER
     Route: 048

REACTIONS (1)
  - MALIGNANT MELANOMA [None]
